FAERS Safety Report 6119800-5 (Version None)
Quarter: 2009Q1

REPORT INFORMATION
  Report Type: 
  Country: None (occurrence: None)
  Receive Date: 20090316
  Receipt Date: 20090309
  Transmission Date: 20090719
  Serious: Yes (Hospitalization)
  Sender: FDA-Public Use
  Company Number: FR-JNJFOC-20090302062

PATIENT
  Sex: Male

DRUGS (1)
  1. DURAGESIC-100 [Suspect]
     Indication: PALLIATIVE CARE
     Route: 062

REACTIONS (3)
  - FAECALOMA [None]
  - PNEUMONIA ASPIRATION [None]
  - SUBILEUS [None]
